FAERS Safety Report 23011019 (Version 2)
Quarter: 2023Q4

REPORT INFORMATION
  Report Type: Spontaneous
  Country: US (occurrence: US)
  Receive Date: 20230929
  Receipt Date: 20231027
  Transmission Date: 20240110
  Serious: Yes (Hospitalization, Other)
  Sender: FDA-Public Use
  Company Number: US-MLMSERVICE-20230918-4551743-2

PATIENT
  Age: 58 Year
  Sex: Female

DRUGS (1)
  1. VENLAFAXINE [Suspect]
     Active Substance: VENLAFAXINE HYDROCHLORIDE
     Indication: Product used for unknown indication
     Dosage: INGESTED 196 CAPSULES
     Route: 048

REACTIONS (6)
  - Cardiogenic shock [Unknown]
  - Acute kidney injury [Unknown]
  - Ischaemic hepatitis [Unknown]
  - Generalised tonic-clonic seizure [Unknown]
  - Hypokinesia [Unknown]
  - Intentional overdose [Unknown]
